FAERS Safety Report 24955552 (Version 1)
Quarter: 2025Q1

REPORT INFORMATION
  Report Type: Spontaneous
  Country: US (occurrence: None)
  Receive Date: 20250211
  Receipt Date: 20250211
  Transmission Date: 20250409
  Serious: Yes (Life-Threatening)
  Sender: FDA-CTU
  Company Number: None

PATIENT
  Age: 39 Year
  Sex: Female
  Weight: 90 kg

DRUGS (1)
  1. ORENCIA [Suspect]
     Active Substance: ABATACEPT
     Indication: Rheumatoid arthritis
     Dosage: OTHER FREQUENCY : MONTHLY;?
     Route: 042
     Dates: start: 20250210, end: 20250210

REACTIONS (7)
  - Chest discomfort [None]
  - Drug ineffective [None]
  - Eye pruritus [None]
  - Nasal congestion [None]
  - Wheezing [None]
  - Eye swelling [None]
  - Visual impairment [None]

NARRATIVE: CASE EVENT DATE: 20250210
